FAERS Safety Report 7818858-2 (Version None)
Quarter: 2011Q4

REPORT INFORMATION
  Report Type: 
  Country: None (occurrence: None)
  Receive Date: 20111018
  Receipt Date: 20111005
  Transmission Date: 20120403
  Serious: Yes (Hospitalization, Other)
  Sender: FDA-Public Use
  Company Number: GB-RANBAXY-2011R1-48662

PATIENT
  Sex: Female

DRUGS (3)
  1. ACETAMINOPHEN [Interacting]
     Indication: PROCEDURAL PAIN
  2. FLOXACILLIN SODIUM [Interacting]
     Indication: STAPHYLOCOCCAL INFECTION
     Dosage: 2 G, QID
     Route: 042
  3. ACETAMINOPHEN [Suspect]
     Indication: ARTHRALGIA
     Dosage: UNK
     Route: 048

REACTIONS (3)
  - METABOLIC ACIDOSIS [None]
  - PYROGLUTAMATE INCREASED [None]
  - DRUG INTERACTION [None]
